FAERS Safety Report 7006541-5 (Version None)
Quarter: 2010Q3

REPORT INFORMATION
  Report Type: 
  Country: None (occurrence: None)
  Receive Date: 20100921
  Receipt Date: 20100921
  Transmission Date: 20110219
  Serious: No
  Sender: FDA-Public Use
  Company Number: None

PATIENT
  Age: 34 Year
  Sex: Male
  Weight: 77.1115 kg

DRUGS (1)
  1. LEVOFLOXIN IV 500 MG ORTHO MICNILE [Suspect]
     Dates: start: 20080414, end: 20080414

REACTIONS (9)
  - FIBROMYALGIA [None]
  - INSOMNIA [None]
  - MUSCLE DISORDER [None]
  - NEPHROPATHY [None]
  - NERVOUS SYSTEM DISORDER [None]
  - NEURITIS [None]
  - PAIN [None]
  - TENDONITIS [None]
  - TINNITUS [None]
